FAERS Safety Report 4992162-2 (Version None)
Quarter: 2006Q2

REPORT INFORMATION
  Report Type: 
  Country: None (occurrence: None)
  Receive Date: 20060502
  Receipt Date: 20060425
  Transmission Date: 20061013
  Serious: Yes (Other)
  Sender: FDA-Public Use
  Company Number: S06-USA-01612-01

PATIENT
  Sex: 0

DRUGS (1)
  1. LEXAPRO [Suspect]

REACTIONS (2)
  - CONVULSION [None]
  - MALAISE [None]
